FAERS Safety Report 4712933-7 (Version None)
Quarter: 2005Q3

REPORT INFORMATION
  Report Type: 
  Country: None (occurrence: None)
  Receive Date: 20050711
  Receipt Date: 20050308
  Transmission Date: 20060218
  Serious: Yes (Hospitalization)
  Sender: FDA-Public Use
  Company Number: A044-002-005670

PATIENT
  Age: 77 Year
  Sex: Female

DRUGS (4)
  1. ARICEPT [Suspect]
     Dosage: 10 MG, 1 IN 1 D, ORAL
     Route: 048
     Dates: start: 19980615
  2. ATARAX [Suspect]
     Dosage: 25 MG, 1 IN 1 D, ORAL
     Route: 048
     Dates: end: 20041203
  3. LEPTICUR (TROPATEPINE HYDROCHLORIDE) [Suspect]
     Dosage: ORAL
     Route: 048
     Dates: end: 20041203
  4. RISPERDAL [Suspect]
     Dosage: 2 MG, 1 IN 1 D, ORAL
     Route: 048

REACTIONS (6)
  - CONFUSIONAL STATE [None]
  - DERMATOSIS [None]
  - DISORIENTATION [None]
  - INCOHERENT [None]
  - PEMPHIGOID [None]
  - PYREXIA [None]
